FAERS Safety Report 7398080-7 (Version None)
Quarter: 2011Q2

REPORT INFORMATION
  Report Type: 
  Country: None (occurrence: None)
  Receive Date: 20110406
  Receipt Date: 20110328
  Transmission Date: 20111010
  Serious: Yes (Hospitalization)
  Sender: FDA-Public Use
  Company Number: FR-ELI_LILLY_AND_COMPANY-FR201103008245

PATIENT
  Sex: Male

DRUGS (3)
  1. CARBOPLATIN [Concomitant]
     Indication: LUNG NEOPLASM MALIGNANT
     Dosage: UNK
     Route: 042
     Dates: start: 20101101
  2. PREDNISONE [Concomitant]
     Dosage: 20 MG, QD
     Route: 048
     Dates: start: 20100901, end: 20110106
  3. ALIMTA [Suspect]
     Indication: LUNG NEOPLASM MALIGNANT
     Dosage: 500 MG, UNKNOWN
     Route: 042
     Dates: start: 20101101

REACTIONS (2)
  - ACARODERMATITIS [None]
  - PRURITUS [None]
